FAERS Safety Report 16642021 (Version 1)
Quarter: 2019Q3

REPORT INFORMATION
  Report Type: Spontaneous
  Country: US (occurrence: US)
  Receive Date: 20190727
  Receipt Date: 20190727
  Transmission Date: 20191004
  Serious: Yes (Other)
  Sender: FDA-Public Use
  Company Number: None

PATIENT
  Sex: Female

DRUGS (11)
  1. MULTIVITAMIN [Concomitant]
     Active Substance: VITAMINS
  2. OXALIPLATIN 100MG [Concomitant]
     Active Substance: OXALIPLATIN
  3. HYDROCHLOROTHIAZIDE 25MG [Concomitant]
     Active Substance: HYDROCHLOROTHIAZIDE
  4. NORVASC [Concomitant]
     Active Substance: AMLODIPINE BESYLATE
  5. SYNTHROID 0.075MG [Concomitant]
  6. DEXAMETHASONE 4MG [Concomitant]
     Active Substance: DEXAMETHASONE
  7. LIPITOR [Concomitant]
     Active Substance: ATORVASTATIN CALCIUM
  8. TYLENOL [Concomitant]
     Active Substance: ACETAMINOPHEN
  9. PEPCID [Concomitant]
     Active Substance: FAMOTIDINE
  10. BOOST [Concomitant]
     Active Substance: DIETARY SUPPLEMENT
  11. CAPECITABINE. [Suspect]
     Active Substance: CAPECITABINE
     Indication: THERAPY CESSATION
     Route: 048
     Dates: start: 20190104

REACTIONS (1)
  - Palmar-plantar erythrodysaesthesia syndrome [None]
